FAERS Safety Report 10674644 (Version 11)
Quarter: 2017Q1

REPORT INFORMATION
  Report Type: Report from Study
  Country: DE (occurrence: DE)
  Receive Date: 20141224
  Receipt Date: 20170125
  Transmission Date: 20170428
  Serious: Yes (Hospitalization, Other)
  Sender: FDA-Public Use
  Company Number: DE-INCYTE CORPORATION-2014IN002089

PATIENT
  Age: 64 Year
  Sex: Female
  Weight: 63 kg

DRUGS (27)
  1. JAKAVI [Suspect]
     Active Substance: RUXOLITINIB
     Dosage: 15 MG, BID (2 DF PER DAY)
     Route: 048
     Dates: start: 20140613, end: 20140813
  2. JAKAVI [Suspect]
     Active Substance: RUXOLITINIB
     Dosage: 15 MG, BID (2 DF PER DAY)
     Route: 048
     Dates: start: 20141030, end: 20141111
  3. LITALIR [Concomitant]
     Active Substance: HYDROXYUREA
     Dosage: 1500 MG, UNK
     Route: 065
     Dates: start: 20150120, end: 20150515
  4. JAKAVI [Suspect]
     Active Substance: RUXOLITINIB
     Dosage: 20 MG, BID (2 DF PER DAY)
     Route: 048
     Dates: start: 20150725
  5. L-THYROXINE [Concomitant]
     Active Substance: LEVOTHYROXINE
     Dosage: 100 OT, QD
     Route: 065
     Dates: start: 20150812
  6. JAKAVI [Suspect]
     Active Substance: RUXOLITINIB
     Indication: PRIMARY MYELOFIBROSIS
     Dosage: 5 MG, BID (2 DF PER DAY)
     Route: 048
     Dates: start: 20140528
  7. JAKAVI [Suspect]
     Active Substance: RUXOLITINIB
     Dosage: 5 MG, BID (2 DF PER DAY)
     Route: 048
     Dates: start: 20140814, end: 20141029
  8. FORMOTEROL [Concomitant]
     Active Substance: FORMOTEROL
     Indication: BRONCHITIS
     Dosage: 12.5 UG, BID
     Route: 065
     Dates: start: 20140513
  9. LITALIR [Concomitant]
     Active Substance: HYDROXYUREA
     Indication: MYELOFIBROSIS
     Dosage: 1000 MG, QD
     Route: 065
     Dates: start: 20141204
  10. LITALIR [Concomitant]
     Active Substance: HYDROXYUREA
     Dosage: 1000 MG, QD
     Route: 065
     Dates: start: 20160809
  11. LITALIR [Concomitant]
     Active Substance: HYDROXYUREA
     Dosage: 1500 MG, UNK
     Route: 065
     Dates: start: 20150521, end: 20151215
  12. LITALIR [Concomitant]
     Active Substance: HYDROXYUREA
     Dosage: 1000 MG, QD
     Route: 065
     Dates: start: 20151216, end: 20160104
  13. LITALIR [Concomitant]
     Active Substance: HYDROXYUREA
     Dosage: 500 MG, QD
     Route: 065
     Dates: start: 20160105, end: 20160323
  14. LITALIR [Concomitant]
     Active Substance: HYDROXYUREA
     Dosage: 1000 MG, QD
     Route: 065
     Dates: start: 20160830
  15. CLONT [Concomitant]
     Indication: PRODUCT USED FOR UNKNOWN INDICATION
     Dosage: 6 G, QD
     Route: 065
     Dates: start: 20150217, end: 20150306
  16. LITALIR [Concomitant]
     Active Substance: HYDROXYUREA
     Dosage: 500 MG, UNK
     Route: 065
     Dates: start: 20160426, end: 20160829
  17. JAKAVI [Suspect]
     Active Substance: RUXOLITINIB
     Dosage: 15 MG, QD (1 DF PER DAY)
     Route: 048
     Dates: start: 20141112, end: 20141208
  18. JAKAVI [Suspect]
     Active Substance: RUXOLITINIB
     Dosage: 15 MG, BID (2 DF PER DAY)
     Route: 048
     Dates: start: 20141209, end: 20150724
  19. LITALIR [Concomitant]
     Active Substance: HYDROXYUREA
     Dosage: 500 MG, QD
     Route: 065
     Dates: start: 20160426, end: 20160808
  20. LITALIR [Concomitant]
     Active Substance: HYDROXYUREA
     Dosage: 1000 MG, UNK
     Route: 065
     Dates: start: 20141204, end: 20141213
  21. LITALIR [Concomitant]
     Active Substance: HYDROXYUREA
     Dosage: 1000 MG, UNK
     Route: 065
     Dates: start: 20141220, end: 20150119
  22. LITALIR [Concomitant]
     Active Substance: HYDROXYUREA
     Dosage: 500 MG, UNK
     Route: 065
     Dates: start: 20160105, end: 20160308
  23. JAKAVI [Suspect]
     Active Substance: RUXOLITINIB
     Dosage: 15 MG, BID (2 DF PER DAY)
     Route: 048
     Dates: start: 20151029, end: 20160203
  24. JAKAVI [Suspect]
     Active Substance: RUXOLITINIB
     Dosage: 20 MG, BID (2 DF PER DAY)
     Route: 048
     Dates: start: 20160204, end: 20161015
  25. IBUPROFEN. [Concomitant]
     Active Substance: IBUPROFEN
     Indication: INTERVERTEBRAL DISC PROTRUSION
     Dosage: 600 MG, QD
     Route: 065
     Dates: start: 20130902
  26. LITALIR [Concomitant]
     Active Substance: HYDROXYUREA
     Dosage: 1500 MG, QD
     Route: 065
     Dates: start: 20150119, end: 20151215
  27. L-THYROXINE [Concomitant]
     Active Substance: LEVOTHYROXINE
     Indication: HYPOTHYROIDISM
     Dosage: 75 MG, QD
     Route: 065
     Dates: end: 20150811

REACTIONS (11)
  - Pneumonia [Recovering/Resolving]
  - Second primary malignancy [Recovered/Resolved with Sequelae]
  - Anaemia [Unknown]
  - Cystitis [Recovered/Resolved]
  - Perichondritis [Unknown]
  - Pain [Unknown]
  - Radiation larynx injury [Recovering/Resolving]
  - Depression [Not Recovered/Not Resolved]
  - Laryngeal squamous cell carcinoma [Recovered/Resolved with Sequelae]
  - Iron overload [Not Recovered/Not Resolved]
  - Gastrooesophageal reflux disease [Not Recovered/Not Resolved]

NARRATIVE: CASE EVENT DATE: 20140711
